FAERS Safety Report 16500079 (Version 3)
Quarter: 2020Q2

REPORT INFORMATION
  Report Type: Report from Study
  Country: US (occurrence: US)
  Receive Date: 20190701
  Receipt Date: 20200427
  Transmission Date: 20200713
  Serious: Yes (Hospitalization, Other)
  Sender: FDA-Public Use
  Company Number: PHHY2019US145880

PATIENT
  Age: 65 Year
  Sex: Male
  Weight: 69.8 kg

DRUGS (18)
  1. GSK1120212 [Suspect]
     Active Substance: TRAMETINIB
     Dosage: 2 MG, QD (VIA G TUBE)
     Route: 048
     Dates: start: 20190327
  2. DABRAFENIB [Suspect]
     Active Substance: DABRAFENIB
     Dosage: 150 MG, BID (VIA G TUBE)
     Route: 050
     Dates: start: 20190514
  3. PEMBROLIZUMAB. [Concomitant]
     Active Substance: PEMBROLIZUMAB
     Indication: THYROID CANCER
     Dosage: 200 MG
     Route: 065
     Dates: start: 20191022, end: 20200330
  4. GSK1120212 [Suspect]
     Active Substance: TRAMETINIB
     Dosage: 2 MG, BID (G-TUBE)
     Route: 050
     Dates: start: 20190617
  5. DABRAFENIB [Suspect]
     Active Substance: DABRAFENIB
     Indication: THYROID CANCER
     Dosage: UNK
     Route: 065
     Dates: start: 20180911
  6. DABRAFENIB [Suspect]
     Active Substance: DABRAFENIB
     Dosage: 150 MG, BID (G-TUBE)
     Route: 065
     Dates: start: 20200227, end: 20200330
  7. GSK1120212 [Suspect]
     Active Substance: TRAMETINIB
     Indication: THYROID CANCER
     Dosage: UNK
     Route: 065
     Dates: start: 20180911
  8. GSK1120212 [Suspect]
     Active Substance: TRAMETINIB
     Dosage: 2 MG, QD (G-TUBE)
     Route: 065
     Dates: start: 20200227, end: 20200330
  9. PANTOPRAZOLE [Concomitant]
     Active Substance: PANTOPRAZOLE
     Indication: GASTRITIS
     Dosage: 2.5 ML, UNK
     Route: 065
     Dates: start: 20190420
  10. GSK1120212 [Suspect]
     Active Substance: TRAMETINIB
     Dosage: 2 MG, BID (G-TUBE)
     Route: 050
     Dates: start: 20190514
  11. APIXABAN [Suspect]
     Active Substance: APIXABAN
     Indication: PRODUCT USED FOR UNKNOWN INDICATION
     Route: 065
  12. ATEZOLIZUMAB. [Concomitant]
     Active Substance: ATEZOLIZUMAB
     Indication: PRODUCT USED FOR UNKNOWN INDICATION
     Route: 065
  13. GSK1120212 [Suspect]
     Active Substance: TRAMETINIB
     Dosage: 2 MG, BID (G-TUBE)
     Route: 050
     Dates: start: 20190617
  14. DABRAFENIB [Suspect]
     Active Substance: DABRAFENIB
     Dosage: 150 MG, BID (VIA G TUBE)
     Route: 050
     Dates: start: 20190617
  15. PANTOPRAZOLE [Concomitant]
     Active Substance: PANTOPRAZOLE
     Dosage: 2.5 ML, UNK
     Route: 065
     Dates: start: 20190423
  16. ABRAXANE [Concomitant]
     Active Substance: PACLITAXEL
     Indication: PRODUCT USED FOR UNKNOWN INDICATION
     Route: 065
  17. DABRAFENIB [Suspect]
     Active Substance: DABRAFENIB
     Dosage: 150 MG, BID (VIA G TUBE)
     Route: 050
     Dates: start: 20190327
  18. POTASSIUM;SODIUM PHOSPHATE [Concomitant]
     Indication: ELECTROLYTE IMBALANCE
     Dosage: 1 DF (250/1100/180 MG), UNK
     Route: 065
     Dates: start: 20190614, end: 20190624

REACTIONS (47)
  - Gastric haemorrhage [Unknown]
  - Productive cough [Not Recovered/Not Resolved]
  - Decreased appetite [Recovered/Resolved]
  - Hypertension [Not Recovered/Not Resolved]
  - Anaemia [Recovered/Resolved]
  - Blood urea increased [Recovered/Resolved]
  - Protein total decreased [Not Recovered/Not Resolved]
  - Dry skin [Not Recovered/Not Resolved]
  - Weight decreased [Not Recovered/Not Resolved]
  - Dysphonia [Not Recovered/Not Resolved]
  - Blood chloride increased [Recovered/Resolved]
  - Pharyngitis [Recovering/Resolving]
  - Hypoalbuminaemia [Not Recovered/Not Resolved]
  - Aspartate aminotransferase increased [Recovered/Resolved]
  - Hyperglycaemia [Not Recovered/Not Resolved]
  - Productive cough [Recovered/Resolved]
  - Pain [Recovered/Resolved]
  - Hyponatraemia [Not Recovered/Not Resolved]
  - White blood cell count decreased [Not Recovered/Not Resolved]
  - Lymphocyte count decreased [Not Recovered/Not Resolved]
  - Anion gap decreased [Not Recovered/Not Resolved]
  - Blood urea increased [Not Recovered/Not Resolved]
  - Oedema peripheral [Not Recovered/Not Resolved]
  - Anaemia [Not Recovered/Not Resolved]
  - Dysphonia [Not Recovered/Not Resolved]
  - Dysphagia [Not Recovered/Not Resolved]
  - Pruritus [Recovered/Resolved]
  - Blood alkaline phosphatase increased [Recovered/Resolved]
  - Anaemia [Not Recovered/Not Resolved]
  - Skin abrasion [Not Recovered/Not Resolved]
  - Transferrin decreased [Not Recovered/Not Resolved]
  - Fatigue [Not Recovered/Not Resolved]
  - Hypoalbuminaemia [Recovered/Resolved]
  - Rash [Not Recovered/Not Resolved]
  - Blood bilirubin increased [Recovered/Resolved]
  - Diarrhoea [Not Recovered/Not Resolved]
  - Blood iron decreased [Not Recovered/Not Resolved]
  - Blood folate decreased [Not Recovered/Not Resolved]
  - Dry skin [Recovered/Resolved]
  - Blood chloride increased [Recovered/Resolved]
  - Hypothyroidism [Not Recovered/Not Resolved]
  - Pruritus [Not Recovered/Not Resolved]
  - Neutrophil count decreased [Not Recovered/Not Resolved]
  - Blood alkaline phosphatase increased [Not Recovered/Not Resolved]
  - Weight increased [Not Recovered/Not Resolved]
  - Gastric fistula [Recovered/Resolved]
  - Aspartate aminotransferase increased [Recovered/Resolved]

NARRATIVE: CASE EVENT DATE: 20180920
